FAERS Safety Report 7361987-0 (Version None)
Quarter: 2011Q1

REPORT INFORMATION
  Report Type: 
  Country: None (occurrence: None)
  Receive Date: 20110305
  Receipt Date: 20110305
  Transmission Date: 20110831
  Serious: Yes (Other)
  Sender: FDA-Public Use
  Company Number: None

PATIENT
  Sex: Female
  Weight: 8.1647 kg

DRUGS (1)
  1. TRAZODONE HCL [Suspect]
     Indication: PSYCHOTIC DISORDER
     Dosage: 1 AT BEDTIME
     Dates: start: 20100801, end: 20101201

REACTIONS (2)
  - PROTRUSION TONGUE [None]
  - MUSCLE TWITCHING [None]
